FAERS Safety Report 9036950 (Version 3)
Quarter: 2013Q1

REPORT INFORMATION
  Report Type: Spontaneous
  Country: US (occurrence: None)
  Receive Date: 20121221
  Receipt Date: 20130117
  Transmission Date: 20140127
  Serious: Yes (Hospitalization, Other)
  Sender: FDA-Public Use
  Company Number: US-145365

PATIENT
  Age: 24 Month
  Sex: Male

DRUGS (1)
  1. WINRHO SDF LIQUID [Suspect]
     Indication: AUTOIMMUNE THROMBOCYTOPENIA
     Dosage: TOTAL
     Route: 042
     Dates: start: 20121106, end: 20121106

REACTIONS (7)
  - Epstein-Barr virus infection [None]
  - Respiratory tract oedema [None]
  - Pyrexia [None]
  - Lymphadenopathy [None]
  - Hepatosplenomegaly [None]
  - Anaemia [None]
  - Condition aggravated [None]
